FAERS Safety Report 5890532-1 (Version None)
Quarter: 2008Q3

REPORT INFORMATION
  Report Type: 
  Country: None (occurrence: None)
  Receive Date: 20080918
  Receipt Date: 20080903
  Transmission Date: 20090109
  Serious: Yes (Other)
  Sender: FDA-Public Use
  Company Number: 20192

PATIENT
  Age: 52 Year
  Sex: Female
  Weight: 88 kg

DRUGS (6)
  1. PACLITAXEL [Suspect]
     Indication: ENDOMETRIAL CANCER
     Dosage: 300 MG IV
     Route: 042
     Dates: start: 20080815, end: 20080815
  2. EPIRUBICIN [Concomitant]
  3. SETIRITSINI [Concomitant]
  4. ONDANSETRON [Concomitant]
  5. RANITIDINI [Concomitant]
  6. DEXAMETHASONE TAB [Concomitant]

REACTIONS (3)
  - COUGH [None]
  - MALAISE [None]
  - SKIN DISCOLOURATION [None]
